FAERS Safety Report 22655660 (Version 4)
Quarter: 2024Q4

REPORT INFORMATION
  Report Type: Spontaneous
  Country: US (occurrence: US)
  Receive Date: 20230629
  Receipt Date: 20241114
  Transmission Date: 20250114
  Serious: Yes (Other)
  Sender: PFIZER
  Company Number: US-PFIZER INC-PV202300032129

PATIENT
  Age: 66 Year
  Sex: Male
  Weight: 127.01 kg

DRUGS (4)
  1. TIKOSYN [Suspect]
     Active Substance: DOFETILIDE
     Indication: Atrial fibrillation
     Dosage: 250MCG ONE CAPSULE TWICE A DAY
     Route: 048
     Dates: start: 20220214
  2. TIKOSYN [Suspect]
     Active Substance: DOFETILIDE
     Dosage: 250 UG, 2X/DAY, (TWO 125 MCG)
  3. TIKOSYN [Suspect]
     Active Substance: DOFETILIDE
     Dosage: 125 UG, QUANTITY FOR 90 DAYS: 360
  4. DOFETILIDE [Suspect]
     Active Substance: DOFETILIDE
     Indication: Atrial fibrillation
     Dosage: 250 UG, 2X/DAY
     Route: 048
     Dates: start: 20220214

REACTIONS (3)
  - Aortic stenosis [Unknown]
  - Hypertrophic cardiomyopathy [Unknown]
  - Hypertension [Unknown]
